FAERS Safety Report 25607741 (Version 1)
Quarter: 2025Q3

REPORT INFORMATION
  Report Type: Spontaneous
  Country: US (occurrence: US)
  Receive Date: 20250725
  Receipt Date: 20250725
  Transmission Date: 20251021
  Serious: Yes (Other)
  Sender: ALEXION PHARMACEUTICALS
  Company Number: US-ASTRAZENECA-202507GLO012449US

PATIENT
  Age: 61 Year
  Sex: Male
  Weight: 118.8 kg

DRUGS (12)
  1. NEXIUM [Suspect]
     Active Substance: ESOMEPRAZOLE MAGNESIUM
  2. FENTANYL [Concomitant]
     Active Substance: FENTANYL
  3. ACETAMINOPHEN [Concomitant]
     Active Substance: ACETAMINOPHEN
  4. MEPERIDINE [Concomitant]
     Active Substance: MEPERIDINE
  5. OXYCODONE [Concomitant]
     Active Substance: OXYCODONE
  6. ATORVASTATIN [Concomitant]
     Active Substance: ATORVASTATIN
  7. PRIMIDONE [Concomitant]
     Active Substance: PRIMIDONE
  8. PROPRANOLOL [Concomitant]
     Active Substance: PROPRANOLOL HYDROCHLORIDE
  9. PROCHLORPERAZINE [Concomitant]
     Active Substance: PROCHLORPERAZINE
  10. NALOXONE [Concomitant]
     Active Substance: NALOXONE
  11. THIAMINE [Concomitant]
     Active Substance: THIAMINE
  12. VASOPRESSIN [Concomitant]
     Active Substance: VASOPRESSIN

REACTIONS (2)
  - Gastric cancer [Unknown]
  - Oesophageal adenocarcinoma [Unknown]
